FAERS Safety Report 6692390-4 (Version None)
Quarter: 2010Q2

REPORT INFORMATION
  Report Type: 
  Country: None (occurrence: None)
  Receive Date: 20100420
  Receipt Date: 20100331
  Transmission Date: 20101027
  Serious: Yes (Other)
  Sender: FDA-Public Use
  Company Number: ALB-003-10-PT

PATIENT
  Age: 46 Year
  Sex: Male

DRUGS (6)
  1. ALBUMIN (HUMAN) [Suspect]
     Indication: FLUID REPLACEMENT
     Dosage: 50 G, I.V.
     Route: 042
     Dates: start: 20100324, end: 20100324
  2. OMEPRAZOLE [Concomitant]
  3. FUROSEMIDE [Concomitant]
  4. CEFTRIAXONE [Concomitant]
  5. PROPRANOLOL [Concomitant]
  6. SPIRONOLACTONE [Concomitant]

REACTIONS (5)
  - DYSPHAGIA [None]
  - DYSPNOEA [None]
  - EYELID OEDEMA [None]
  - GLOSSODYNIA [None]
  - LIP OEDEMA [None]
